FAERS Safety Report 5374295-4 (Version None)
Quarter: 2007Q2

REPORT INFORMATION
  Report Type: 
  Country: None (occurrence: None)
  Receive Date: 20070629
  Receipt Date: 20070206
  Transmission Date: 20071010
  Serious: Yes (Other)
  Sender: FDA-Public Use
  Company Number: US-ROCHE-364125

PATIENT
  Age: 48 Year
  Sex: Male

DRUGS (4)
  1. PEGASYS [Suspect]
     Indication: DRUG USE FOR UNKNOWN INDICATION
     Route: 058
     Dates: start: 20031129, end: 20040414
  2. PEGASYS [Suspect]
     Route: 058
     Dates: start: 20040421, end: 20041029
  3. RIBAVIRIN [Suspect]
     Indication: DRUG USE FOR UNKNOWN INDICATION
     Route: 048
     Dates: start: 20031129
  4. RIBAVIRIN [Suspect]
     Route: 048
     Dates: end: 20041029

REACTIONS (8)
  - DYSPNOEA [None]
  - FISTULA [None]
  - HEPATIC CIRRHOSIS [None]
  - OPEN WOUND [None]
  - PLATELET COUNT ABNORMAL [None]
  - RED BLOOD CELL COUNT DECREASED [None]
  - SINUS DISORDER [None]
  - WHITE BLOOD CELL COUNT DECREASED [None]
